FAERS Safety Report 4647997-2 (Version None)
Quarter: 2005Q2

REPORT INFORMATION
  Report Type: 
  Country: None (occurrence: None)
  Receive Date: 20050331
  Receipt Date: 20050117
  Transmission Date: 20051028
  Serious: No
  Sender: FDA-Public Use
  Company Number: 05P-163-0286925-00

PATIENT
  Age: 62 Year
  Sex: 0
  Weight: 51.7101 kg

DRUGS (4)
  1. HUMIRA [Suspect]
     Indication: RHEUMATOID ARTHRITIS
     Dosage: 40 MG, 1 IN 2 WK, SUBCUTANEOUS
     Route: 058
     Dates: start: 20040201
  2. VENLAFAXINE HCL [Suspect]
     Indication: SOMNOLENCE
     Dates: start: 20031101, end: 20050113
  3. OXYCOCET [Suspect]
     Indication: PAIN
     Dosage: AS REQUIRED
     Dates: start: 20040501
  4. ZOLPIDEM TARTRATE [Concomitant]

REACTIONS (7)
  - BLOOD THYROID STIMULATING HORMONE INCREASED [None]
  - EPISTAXIS [None]
  - HEADACHE [None]
  - HEPATIC ENZYME INCREASED [None]
  - NAUSEA [None]
  - RENAL FUNCTION TEST ABNORMAL [None]
  - SINUS DISORDER [None]
